FAERS Safety Report 11129025 (Version 3)
Quarter: 2015Q2

REPORT INFORMATION
  Report Type: Spontaneous
  Country: FR (occurrence: FR)
  Receive Date: 20150521
  Receipt Date: 20150629
  Transmission Date: 20150821
  Serious: Yes (Other)
  Sender: FDA-Public Use
  Company Number: FR-PFIZER INC-2015172758

PATIENT
  Sex: Female

DRUGS (7)
  1. PREVISCAN /00789001/ [Suspect]
     Active Substance: FLUINDIONE
     Dosage: 20 MG, UNK
     Dates: start: 200808
  2. INIPOMP [Suspect]
     Active Substance: PANTOPRAZOLE SODIUM
     Dosage: UNK
  3. INNOHEP [Suspect]
     Active Substance: TINZAPARIN SODIUM
     Dosage: UNK
     Dates: start: 20120204
  4. BISOPROLOL FUMARATE. [Suspect]
     Active Substance: BISOPROLOL FUMARATE
     Dosage: UNK
     Dates: start: 200808
  5. TRIATEC [Suspect]
     Active Substance: RAMIPRIL
     Dosage: UNK
     Dates: start: 200808
  6. ALDACTONE [Suspect]
     Active Substance: SPIRONOLACTONE
     Dosage: UNK
     Route: 065
     Dates: start: 200808
  7. LASILIX /00032601/ [Suspect]
     Active Substance: FUROSEMIDE
     Dosage: UNK
     Dates: start: 200808

REACTIONS (1)
  - Oligohydramnios [Unknown]

NARRATIVE: CASE EVENT DATE: 2012
